FAERS Safety Report 5200162-2 (Version None)
Quarter: 2006Q4

REPORT INFORMATION
  Report Type: 
  Country: None (occurrence: None)
  Receive Date: 20061016
  Receipt Date: 20060818
  Transmission Date: 20070319
  Serious: No
  Sender: FDA-Public Use
  Company Number: 2006SP003060

PATIENT
  Age: 72 Year
  Sex: Female
  Weight: 88.905 kg

DRUGS (8)
  1. LUNESTA [Suspect]
     Indication: INSOMNIA
     Dosage: 3 MG;HS;ORAL
     Route: 048
     Dates: start: 20060101
  2. ALTACE [Concomitant]
  3. COREG [Concomitant]
  4. INDAPAMIDE [Concomitant]
  5. AVAPRO [Concomitant]
  6. NOVONORM [Concomitant]
  7. METFORMIN HCL [Concomitant]
  8. DICLOFENAC SODIUM [Concomitant]

REACTIONS (1)
  - INSOMNIA [None]
